FAERS Safety Report 4324665-8 (Version None)
Quarter: 2004Q1

REPORT INFORMATION
  Report Type: 
  Country: None (occurrence: None)
  Receive Date: 20040325
  Receipt Date: 20040325
  Transmission Date: 20041129
  Serious: Yes (Other)
  Sender: FDA-Public Use
  Company Number: None

PATIENT
  Sex: Female
  Weight: 81.6475 kg

DRUGS (2)
  1. PAXIL [Suspect]
     Indication: PANIC ATTACK
     Dosage: ONCE DAILY ORAL
     Route: 048
     Dates: start: 20030901, end: 20040322
  2. WELLBUTRIN SR [Suspect]
     Dosage: TWICE DAILY ORAL
     Route: 048
     Dates: start: 20031101, end: 20040322

REACTIONS (6)
  - COMPLICATIONS OF MATERNAL EXPOSURE TO THERAPEUTIC DRUGS [None]
  - DEPRESSION [None]
  - FEELING OF DESPAIR [None]
  - POST-TRAUMATIC STRESS DISORDER [None]
  - PREGNANCY [None]
  - SELF-INJURIOUS IDEATION [None]
